FAERS Safety Report 11282009 (Version 2)
Quarter: 2015Q3

REPORT INFORMATION
  Report Type: Spontaneous
  Country: JP (occurrence: JP)
  Receive Date: 20150718
  Receipt Date: 20150724
  Transmission Date: 20151125
  Serious: Yes (Hospitalization, Other)
  Sender: FDA-Public Use
  Company Number: JP-PFIZER INC-2015175807

PATIENT
  Age: 9 Year
  Sex: Male
  Weight: 14 kg

DRUGS (16)
  1. FOSPHENYTOIN SODIUM. [Suspect]
     Active Substance: FOSPHENYTOIN SODIUM
     Dosage: 225 MG, DAILY
     Route: 042
     Dates: start: 20150511, end: 20150513
  2. FOSPHENYTOIN SODIUM. [Suspect]
     Active Substance: FOSPHENYTOIN SODIUM
     Dosage: 300 MG, DAILY
     Route: 042
     Dates: start: 20150514, end: 20150517
  3. MENDON [Concomitant]
     Active Substance: CLORAZEPATE DIPOTASSIUM
     Indication: EPILEPSY
     Dosage: 30 MG, DAILY
     Route: 048
  4. BENZALIN [Concomitant]
     Active Substance: NITRAZEPAM
     Indication: EPILEPSY
     Dosage: 4 MG, DAILY
     Route: 048
  5. PHENOBARBITAL. [Concomitant]
     Active Substance: PHENOBARBITAL
     Indication: SEIZURE
     Dosage: 7 MG/KG, SINGLE
     Dates: start: 20150515
  6. MEPTIN [Concomitant]
     Active Substance: PROCATEROL HYDROCHLORIDE
     Indication: BRONCHITIS
     Dosage: 3 ML, 2X/DAY
     Route: 048
     Dates: start: 20150515, end: 20150605
  7. SULPERAZON/CEFLONIC [Concomitant]
     Indication: BRONCHITIS
     Dosage: 0.5 G, 3X/DAY
     Route: 042
     Dates: start: 20150508, end: 20150511
  8. PHENOBAL [Concomitant]
     Active Substance: PHENOBARBITAL
     Dosage: 3.75 MG/KG, DAILY
     Route: 048
     Dates: start: 20150525
  9. MIYA-BM [Concomitant]
     Active Substance: CLOSTRIDIUM BUTYRICUM SPORES STRAIN M-55
     Indication: DIARRHOEA
  10. PHENOBAL [Concomitant]
     Active Substance: PHENOBARBITAL
     Dosage: 36 MG, DAILY
     Route: 048
     Dates: end: 20150508
  11. PHENOBAL [Concomitant]
     Active Substance: PHENOBARBITAL
     Dosage: 5 MG/KG, DAILY
     Route: 048
     Dates: start: 20150529
  12. MIYA-BM [Concomitant]
     Active Substance: CLOSTRIDIUM BUTYRICUM SPORES STRAIN M-55
     Indication: PROPHYLAXIS AGAINST DIARRHOEA
     Dosage: 1 G, 2X/DAY
     Route: 048
     Dates: start: 20150515, end: 20150605
  13. FOSPHENYTOIN SODIUM. [Suspect]
     Active Substance: FOSPHENYTOIN SODIUM
     Indication: STATUS EPILEPTICUS
     Dosage: 112.5 MG, DAILY
     Route: 042
     Dates: start: 20150508, end: 20150510
  14. ALEVIATIN [Suspect]
     Active Substance: PHENYTOIN SODIUM
     Indication: STATUS EPILEPTICUS
     Dosage: 200 MG, DAILY
     Route: 048
     Dates: start: 20150518, end: 20150519
  15. MUCODYNE [Concomitant]
     Active Substance: CARBOCYSTEINE
     Indication: BRONCHITIS
     Dosage: 5 ML, 2X/DAY
     Route: 048
     Dates: start: 20150515, end: 20150605
  16. PHENOBAL [Concomitant]
     Active Substance: PHENOBARBITAL
     Dosage: 2.5 MG/KG, DAILY
     Route: 048
     Dates: start: 20150517

REACTIONS (4)
  - Drug reaction with eosinophilia and systemic symptoms [Unknown]
  - Pyrexia [Recovered/Resolved]
  - Hepatic function abnormal [Recovered/Resolved]
  - Rash [Recovered/Resolved]

NARRATIVE: CASE EVENT DATE: 20150518
